FAERS Safety Report 21692186 (Version 1)
Quarter: 2022Q4

REPORT INFORMATION
  Report Type: Spontaneous
  Country: US (occurrence: US)
  Receive Date: 20221207
  Receipt Date: 20221207
  Transmission Date: 20230113
  Serious: Yes (Other)
  Sender: FDA-Public Use
  Company Number: US-Shilpa Medicare Limited-SML-US-2022-01575

PATIENT
  Age: 8 Decade
  Sex: Male

DRUGS (3)
  1. GEMCITABINE [Suspect]
     Active Substance: GEMCITABINE
     Indication: Small intestine carcinoma
  2. CISPLATIN [Suspect]
     Active Substance: CISPLATIN
     Indication: Small intestine carcinoma
  3. OLAPARIB [Suspect]
     Active Substance: OLAPARIB
     Indication: Small intestine carcinoma

REACTIONS (2)
  - Small intestine carcinoma recurrent [Recovered/Resolved]
  - Drug ineffective [Recovered/Resolved]
